FAERS Safety Report 23903612 (Version 1)
Quarter: 2024Q2

REPORT INFORMATION
  Report Type: Spontaneous
  Country: US (occurrence: US)
  Receive Date: 20240527
  Receipt Date: 20240527
  Transmission Date: 20240716
  Serious: Yes (Other)
  Sender: FDA-Public Use
  Company Number: US-BAUSCH-BL-2024-008133

PATIENT
  Age: 74 Year
  Sex: Male

DRUGS (2)
  1. TARGRETIN [Suspect]
     Active Substance: BEXAROTENE
     Indication: Cutaneous T-cell lymphoma
     Route: 065
  2. TARGRETIN [Suspect]
     Active Substance: BEXAROTENE
     Route: 065

REACTIONS (3)
  - Interstitial lung disease [Unknown]
  - Dyspnoea [Unknown]
  - High density lipoprotein decreased [Unknown]
